FAERS Safety Report 8943513 (Version 2)
Quarter: 2013Q1

REPORT INFORMATION
  Report Type: Spontaneous
  Country: DE (occurrence: DE)
  Receive Date: 20121203
  Receipt Date: 20130213
  Transmission Date: 20140127
  Serious: Yes (Other)
  Sender: FDA-Public Use
  Company Number: DE-009507513-1211DEU011571

PATIENT
  Age: 40 Year
  Sex: Female
  Weight: 77 kg

DRUGS (4)
  1. VICTRELIS [Suspect]
     Indication: HEPATITIS C
     Dosage: 4 DF, TID
     Route: 048
     Dates: start: 201203, end: 201210
  2. PEGINTRON [Suspect]
     Indication: HEPATITIS C
     Dosage: 120 MICROGRAM, QW
     Dates: start: 201202, end: 201301
  3. REBETOL [Suspect]
     Indication: HEPATITIS C
     Dosage: 600 MG, UNK
  4. REBETOL [Suspect]
     Dosage: 100 MG, QD
     Dates: start: 201202, end: 201301

REACTIONS (2)
  - Anaemia [Recovered/Resolved]
  - Transfusion [Unknown]
